FAERS Safety Report 14152936 (Version 1)
Quarter: 2017Q4

REPORT INFORMATION
  Report Type: Report from Study
  Country: US (occurrence: US)
  Receive Date: 20171102
  Receipt Date: 20171102
  Transmission Date: 20180321
  Serious: Yes (Life-Threatening, Hospitalization)
  Sender: FDA-Public Use
  Company Number: PHHO2012US002853

PATIENT
  Age: 66 Year
  Sex: Female
  Weight: 80 kg

DRUGS (4)
  1. PREDNISON [Suspect]
     Active Substance: PREDNISONE
     Dosage: 1 MG, DAILY
     Route: 065
     Dates: start: 20120209, end: 20120216
  2. PREDNISON [Suspect]
     Active Substance: PREDNISONE
     Dosage: 5 MG, DAILY
     Route: 065
     Dates: start: 20120203, end: 20120209
  3. PREDNISON [Suspect]
     Active Substance: PREDNISONE
     Indication: IDIOPATHIC URTICARIA
     Dosage: 10 MG, DAILY
     Route: 065
     Dates: start: 20111030, end: 20120203
  4. ILARIS [Suspect]
     Active Substance: CANAKINUMAB
     Indication: CARDIOVASCULAR EVENT PROPHYLAXIS
     Dosage: 300 MG, QUARTERLY
     Route: 048
     Dates: start: 20111103, end: 20111114

REACTIONS (1)
  - Staphylococcal sepsis [Not Recovered/Not Resolved]

NARRATIVE: CASE EVENT DATE: 20120216
